FAERS Safety Report 21204114 (Version 3)
Quarter: 2023Q2

REPORT INFORMATION
  Report Type: Report from Study
  Country: US (occurrence: None)
  Receive Date: 20220812
  Receipt Date: 20230615
  Transmission Date: 20230722
  Serious: Yes (Hospitalization, Other)
  Sender: FDA-Public Use
  Company Number: US-ROCHE-3157388

PATIENT
  Age: 49 Year
  Sex: Female
  Weight: 74.3 kg

DRUGS (4)
  1. ATEZOLIZUMAB [Suspect]
     Active Substance: ATEZOLIZUMAB
     Indication: Colon cancer stage III
     Dosage: 30-60 MINUTES STARTING ON DAY 1 OF CYCLE 1 OR 2. TREATMENT REPEATS EVERY 14 DAYS FOR UP TO 25 CYCLES
     Route: 042
     Dates: start: 20220414, end: 20220721
  2. FLUOROURACIL [Suspect]
     Active Substance: FLUOROURACIL
     Indication: Colon cancer stage III
     Dosage: TOTAL ADMINISTERED DOSE 3600MG, LAST ADMINISTERED DATE ON 21/JUL/2022
     Route: 065
     Dates: start: 20220414, end: 20220623
  3. LEUCOVORIN CALCIUM [Suspect]
     Active Substance: LEUCOVORIN CALCIUM
     Indication: Colon cancer stage III
     Dosage: LAST ADMINISTERED DOSE ON 21/JUL/2022
     Route: 065
     Dates: start: 20220414
  4. OXALIPLATIN [Suspect]
     Active Substance: OXALIPLATIN
     Indication: Colon cancer stage III
     Dosage: LAST ADMINISTRATION DOSE 120 MG ON 21/JUL/2022
     Route: 065
     Dates: start: 20220414

REACTIONS (6)
  - Pneumonia [Not Recovered/Not Resolved]
  - Neutrophil count decreased [Unknown]
  - Pain [Not Recovered/Not Resolved]
  - Pyrexia [Recovered/Resolved]
  - Hypoxia [Recovered/Resolved]
  - Pleuritic pain [Recovered/Resolved]

NARRATIVE: CASE EVENT DATE: 20220624
